FAERS Safety Report 16543802 (Version 1)
Quarter: 2019Q3

REPORT INFORMATION
  Report Type: Spontaneous
  Country: US (occurrence: US)
  Receive Date: 20190527
  Receipt Date: 20190527
  Transmission Date: 20191004
  Serious: No
  Sender: FDA-Public Use
  Company Number: None

PATIENT
  Age: 53 Year
  Sex: Female

DRUGS (1)
  1. MYCOPHENOLIC TAB 360MG DR [Suspect]
     Active Substance: MYCOPHENOLIC ACID
     Dates: start: 201901

REACTIONS (4)
  - Constipation [None]
  - Muscle disorder [None]
  - Vein disorder [None]
  - Insomnia [None]

NARRATIVE: CASE EVENT DATE: 20190527
